FAERS Safety Report 7154238-3 (Version None)
Quarter: 2010Q4

REPORT INFORMATION
  Report Type: 
  Country: None (occurrence: None)
  Receive Date: 20101213
  Receipt Date: 20101206
  Transmission Date: 20110411
  Serious: Yes (Hospitalization)
  Sender: FDA-Public Use
  Company Number: CA-TYCO HEALTHCARE/MALLINCKRODT-T201002390

PATIENT
  Age: 41 Year
  Sex: Female

DRUGS (3)
  1. PENNSAID [Suspect]
     Indication: PSORIATIC ARTHROPATHY
     Dosage: UNK
  2. ETANERCEPT [Suspect]
     Indication: PSORIATIC ARTHROPATHY
     Dosage: UNK
  3. CELECOXIB [Suspect]
     Indication: PSORIATIC ARTHROPATHY
     Dosage: UNK

REACTIONS (2)
  - COLITIS COLLAGENOUS [None]
  - DEHYDRATION [None]
